FAERS Safety Report 7360767-X (Version None)
Quarter: 2011Q1

REPORT INFORMATION
  Report Type: 
  Country: None (occurrence: None)
  Receive Date: 20110318
  Receipt Date: 20110308
  Transmission Date: 20110831
  Serious: Yes (Hospitalization)
  Sender: FDA-Public Use
  Company Number: KR-SANOFI-AVENTIS-2010SA059533

PATIENT
  Age: 58 Year
  Sex: Male
  Weight: 66 kg

DRUGS (57)
  1. OXALIPLATIN [Suspect]
     Dosage: 1 IN 14 DAYS
     Route: 041
     Dates: start: 20100101, end: 20100101
  2. FOLINIC ACID [Concomitant]
     Indication: COLORECTAL CANCER
     Route: 042
     Dates: start: 20100217, end: 20100217
  3. TRAMADOL HCL [Concomitant]
     Indication: ABDOMINAL PAIN
     Route: 048
     Dates: start: 20100222, end: 20100223
  4. TRAMADOL HCL [Concomitant]
     Route: 048
     Dates: start: 20100409, end: 20100411
  5. GABAPENTIN [Concomitant]
     Route: 048
     Dates: start: 20100426, end: 20100510
  6. COUGH SYRUP [Concomitant]
     Indication: COUGH
     Route: 048
     Dates: start: 20100703, end: 20100708
  7. TRAMADOL HCL [Concomitant]
     Route: 048
     Dates: start: 20100222, end: 20100223
  8. METOCLOPRAMIDE HYDROCHLORIDE [Concomitant]
     Route: 042
     Dates: start: 20100409, end: 20100409
  9. METOCLOPRAMIDE HYDROCHLORIDE [Concomitant]
     Route: 042
     Dates: start: 20100703, end: 20100703
  10. METOCLOPRAMIDE HYDROCHLORIDE [Concomitant]
     Route: 042
     Dates: start: 20100703, end: 20100703
  11. SODIUM BICARBONATE [Concomitant]
     Indication: STOMATITIS
     Dosage: 10 TO 20 CC GARGLE
     Dates: start: 20100223
  12. SODIUM BICARBONATE [Concomitant]
     Dosage: 10 TO 20 CC GARGLE
     Dates: start: 20100223
  13. GABAPENTIN [Concomitant]
     Route: 048
     Dates: start: 20100519
  14. OXYCODONE HCL [Concomitant]
     Indication: ABDOMINAL PAIN
     Dates: start: 20100412, end: 20100420
  15. INVESTIGATIONAL DRUG [Suspect]
     Route: 048
     Dates: start: 20100806
  16. ONDANSETRON [Concomitant]
     Indication: PROPHYLAXIS
     Route: 042
     Dates: start: 20100217, end: 20100907
  17. RANITIDINE [Concomitant]
     Indication: PROPHYLAXIS
     Dosage: TWICE PER DAY EVERY CYCLE
     Route: 048
     Dates: start: 20100217, end: 20100912
  18. METOCLOPRAMIDE HYDROCHLORIDE [Concomitant]
     Indication: PROPHYLAXIS
     Route: 042
     Dates: start: 20100218, end: 20100218
  19. DEXAMETHASONE [Concomitant]
     Route: 048
     Dates: start: 20100218, end: 20100910
  20. LIDOCAINE [Concomitant]
     Dosage: 20 TO 30 CC GARGLE
     Dates: start: 20100319, end: 20100409
  21. MAGNESIUM OXIDE [Concomitant]
     Indication: CONSTIPATION
     Route: 048
     Dates: start: 20100410, end: 20100410
  22. CHLORPHENAMINE [Concomitant]
     Indication: PROPHYLAXIS
     Route: 042
     Dates: start: 20100218, end: 20100218
  23. CHLORPHENAMINE [Concomitant]
     Route: 042
     Dates: start: 20100703, end: 20100703
  24. AMOXICILLIN AND CLAVULANATE POTASSIUM [Concomitant]
     Route: 048
     Dates: start: 20100624, end: 20100630
  25. POTASSIUM CHLORIDE [Concomitant]
     Route: 048
     Dates: start: 20100702, end: 20100702
  26. OXALIPLATIN [Suspect]
     Indication: COLORECTAL CANCER
     Dosage: 1 IN 14 DAYS
     Route: 041
     Dates: start: 20100217, end: 20100217
  27. INVESTIGATIONAL DRUG [Suspect]
     Indication: COLORECTAL CANCER
     Dosage: 1 IN 14 DAY
     Route: 048
     Dates: start: 20100217, end: 20100616
  28. FLUOROURACIL [Concomitant]
     Route: 042
     Dates: start: 20100907, end: 20100907
  29. METOCLOPRAMIDE HYDROCHLORIDE [Concomitant]
     Route: 042
     Dates: start: 20100409, end: 20100409
  30. CHLORPHENAMINE [Concomitant]
     Indication: NAUSEA
     Route: 042
     Dates: start: 20100218, end: 20100218
  31. CHLORPHENAMINE [Concomitant]
     Route: 042
     Dates: start: 20100409, end: 20100409
  32. CLOTIAZEPAM [Concomitant]
     Indication: ABDOMINAL PAIN
     Route: 048
     Dates: start: 20100224, end: 20100302
  33. GABAPENTIN [Concomitant]
     Route: 048
     Dates: start: 20100319, end: 20100320
  34. TRAMADOL HCL [Concomitant]
     Route: 048
     Dates: start: 20100409, end: 20100411
  35. ATORVASTATIN CALCIUM [Concomitant]
     Route: 048
     Dates: start: 20100717, end: 20100729
  36. FLUOROURACIL [Concomitant]
     Indication: COLORECTAL CANCER
     Route: 042
     Dates: start: 20100217, end: 20100217
  37. FOLINIC ACID [Concomitant]
     Route: 042
     Dates: start: 20100907, end: 20100907
  38. METOCLOPRAMIDE HYDROCHLORIDE [Concomitant]
     Indication: NAUSEA
     Route: 042
     Dates: start: 20100218, end: 20100218
  39. CHLORPHENAMINE [Concomitant]
     Route: 042
     Dates: start: 20100703, end: 20100703
  40. DEXAMETHASONE [Concomitant]
     Indication: PROPHYLAXIS
     Route: 042
     Dates: start: 20100217, end: 20100907
  41. VANCOMYCIN HCL [Concomitant]
     Route: 042
     Dates: start: 20100410, end: 20100411
  42. LEVOFLOXACIN [Concomitant]
     Indication: WOUND COMPLICATION
     Route: 048
     Dates: start: 20100412, end: 20100418
  43. LEVOFLOXACIN [Concomitant]
     Route: 048
     Dates: start: 20100412, end: 20100418
  44. VALSARTAN [Concomitant]
     Indication: HYPERTENSION
     Route: 048
     Dates: start: 20100410, end: 20100410
  45. DOXAZOSIN MESYLATE [Concomitant]
     Indication: URINARY RETENTION
     Route: 048
     Dates: start: 20100603
  46. AMOXICILLIN AND CLAVULANATE POTASSIUM [Concomitant]
     Indication: WOUND COMPLICATION
     Route: 048
     Dates: start: 20100624, end: 20100630
  47. BENZYDAMINE [Concomitant]
     Dosage: GARGLE FREQUENTLY
     Dates: start: 20100703, end: 20100710
  48. AMBROXOL [Concomitant]
     Indication: COUGH
     Route: 048
     Dates: start: 20100717, end: 20100718
  49. INVESTIGATIONAL DRUG [Suspect]
     Dosage: 1 IN 14 DAYS
     Route: 048
     Dates: start: 20100702, end: 20100729
  50. TRAMADOL HCL [Concomitant]
     Route: 048
     Dates: start: 20100318
  51. TRAMADOL HCL [Concomitant]
     Route: 048
     Dates: start: 20100318
  52. ONDANSETRON [Concomitant]
     Route: 048
     Dates: start: 20100218, end: 20100907
  53. CHLORPHENAMINE [Concomitant]
     Route: 042
     Dates: start: 20100409, end: 20100409
  54. GABAPENTIN [Concomitant]
     Route: 048
     Dates: start: 20100321, end: 20100404
  55. VANCOMYCIN HCL [Concomitant]
     Indication: WOUND COMPLICATION
     Route: 042
     Dates: start: 20100410, end: 20100411
  56. COUGH SYRUP [Concomitant]
     Route: 048
     Dates: start: 20100717, end: 20100718
  57. AMLODIPINE [Concomitant]
     Indication: HYPERTENSION
     Route: 048
     Dates: start: 20100705, end: 20100707

REACTIONS (1)
  - PERIPHERAL MOTOR NEUROPATHY [None]
